FAERS Safety Report 9131285 (Version 1)
Quarter: 2013Q1

REPORT INFORMATION
  Report Type: Spontaneous
  Country: QA (occurrence: QA)
  Receive Date: 20130301
  Receipt Date: 20130301
  Transmission Date: 20140127
  Serious: Yes (Other)
  Sender: FDA-Public Use
  Company Number: QA-AMGEN-QATSP2013012112

PATIENT
  Age: 51 Year
  Sex: Female
  Weight: 55 kg

DRUGS (12)
  1. FILGRASTIM [Suspect]
     Indication: LEUKOPENIA
     Dosage: 300 MUG, QD FOR 8 DAYS
     Route: 058
     Dates: start: 20120502
  2. FILGRASTIM [Suspect]
     Indication: NEUTROPENIA
  3. ETOPOSIDE [Concomitant]
     Indication: HODGKIN^S DISEASE
     Dosage: 40 MG/M2/DAY ON DAYS 1-4
     Dates: start: 20120423
  4. METHYLPREDNISOLONE [Concomitant]
     Indication: HODGKIN^S DISEASE
     Dosage: 500 MG/DAY ON DAYS 1-4
     Dates: start: 20120423
  5. CYTARABINE [Concomitant]
     Indication: HODGKIN^S DISEASE
     Dosage: 2000 MG/M2, ON DAY 5
     Dates: start: 20120423
  6. CISPLATIN [Concomitant]
     Indication: HODGKIN^S DISEASE
     Dosage: 25 MG/M2/DAY AS A CONTINUOUS INFUSION ON DAYS 1-4.
     Route: 042
     Dates: start: 20120423
  7. PROPRANOLOL [Concomitant]
     Dosage: 20 MG, BID
  8. SPIRONOLACTONE [Concomitant]
     Dosage: 50 MG, QD
  9. ALLOPURINOL [Concomitant]
     Dosage: 100 MG, QD
  10. ENTECAVIR [Concomitant]
     Dosage: 1 MG, QD
  11. FUROSEMIDE [Concomitant]
     Dosage: 40 MG, QD
  12. LACTULOSE [Concomitant]
     Dosage: 30 ML, BID

REACTIONS (4)
  - Hypophosphataemia [Recovered/Resolved]
  - White blood cell count decreased [Recovered/Resolved]
  - Blood potassium decreased [Unknown]
  - White blood cell count increased [Unknown]
